FAERS Safety Report 4595774-3 (Version None)
Quarter: 2005Q1

REPORT INFORMATION
  Report Type: 
  Country: None (occurrence: None)
  Receive Date: 20050224
  Receipt Date: 20050218
  Transmission Date: 20050727
  Serious: Yes (Hospitalization)
  Sender: FDA-Public Use
  Company Number: A044-002-005478

PATIENT
  Age: 63 Year
  Sex: Female

DRUGS (8)
  1. ARICEPT [Suspect]
     Dosage: 10 MG, 1 IN 1 D, ORAL
     Route: 048
     Dates: end: 20040122
  2. SEROQUEL [Suspect]
     Dosage: 400 MG
     Dates: end: 20040116
  3. LORAZEPAM [Suspect]
     Dosage: 6 MG
     Dates: end: 20040122
  4. TRAZODONE HCL [Suspect]
     Dosage: 400 MG
     Dates: start: 20040106, end: 20040122
  5. QUILONUM (LITHIUM ACETATE) [Suspect]
     Dosage: 675 MG
     Dates: end: 20040107
  6. ZYPREXA [Suspect]
     Dosage: 20 MG
     Dates: start: 20040116, end: 20040119
  7. ZELDOX (ZIPRASIDONE HYDROCHLORIDE) [Suspect]
     Dosage: 80 MG
     Dates: start: 20040119, end: 20040122
  8. HALDOL [Suspect]
     Dosage: 6 MG
     Dates: start: 20040118, end: 20040121

REACTIONS (5)
  - DRUG INTERACTION [None]
  - HAEMODIALYSIS [None]
  - NEUROLEPTIC MALIGNANT SYNDROME [None]
  - RENAL FAILURE ACUTE [None]
  - RHABDOMYOLYSIS [None]
